FAERS Safety Report 16250315 (Version 1)
Quarter: 2019Q2

REPORT INFORMATION
  Report Type: Spontaneous
  Country: US (occurrence: US)
  Receive Date: 20190429
  Receipt Date: 20190429
  Transmission Date: 20190711
  Serious: Yes (Hospitalization)
  Sender: FDA-Public Use
  Company Number: US-PFIZER INC-2019176047

PATIENT
  Age: 68 Year
  Sex: Female
  Weight: 79.37 kg

DRUGS (1)
  1. BOSULIF [Suspect]
     Active Substance: BOSUTINIB MONOHYDRATE
     Indication: CHRONIC MYELOID LEUKAEMIA
     Dosage: UNK UNK, DAILY
     Route: 048
     Dates: start: 201810, end: 201810

REACTIONS (4)
  - Pancreas infection [Unknown]
  - Abdominal pain [Unknown]
  - Dehydration [Unknown]
  - Vomiting [Unknown]
